FAERS Safety Report 9726865 (Version 2)
Quarter: 2014Q1

REPORT INFORMATION
  Report Type: Spontaneous
  Country: US (occurrence: US)
  Receive Date: 20131203
  Receipt Date: 20140128
  Transmission Date: 20141002
  Serious: No
  Sender: FDA-Public Use
  Company Number: US-PFIZER INC-2013341629

PATIENT
  Age: 35 Year
  Sex: Female
  Weight: 113.38 kg

DRUGS (2)
  1. JUNIOR STRENGTH ADVIL [Suspect]
     Dosage: UNK, ONCE
     Route: 048
     Dates: start: 20131127
  2. ALLEGRA [Concomitant]
     Indication: HYPERSENSITIVITY
     Dosage: 180MG, ONCE A DAY

REACTIONS (4)
  - Oral discomfort [Unknown]
  - Burning sensation [Unknown]
  - Oral disorder [Unknown]
  - Nasopharyngitis [Unknown]
